FAERS Safety Report 21950434 (Version 3)
Quarter: 2023Q2

REPORT INFORMATION
  Report Type: Spontaneous
  Country: GR (occurrence: GR)
  Receive Date: 20230203
  Receipt Date: 20230519
  Transmission Date: 20230721
  Serious: No
  Sender: FDA-Public Use
  Company Number: GR-PFIZER INC-PV202300016271

PATIENT
  Age: 10 Year
  Sex: Female
  Weight: 24 kg

DRUGS (2)
  1. GENOTROPIN [Suspect]
     Active Substance: SOMATROPIN
     Indication: Growth hormone deficiency
     Dosage: 5 MG, WEEKLY (5 DAYS: 0.8MG, 1 DAY: 1MG)/ 6 DAYS/ 12MG PEN), 1 DAY OFF
     Route: 058
     Dates: start: 202211
  2. GENOTROPIN [Suspect]
     Active Substance: SOMATROPIN
     Indication: Growth hormone deficiency
     Dosage: 5 MG, WEEKLY (5 DAYS: 0.8MG, 1 DAY: 1MG)/ 6 DAYS/ 12MG PEN), 1 DAY OFF
     Route: 058
     Dates: start: 202211

REACTIONS (4)
  - Product preparation issue [Unknown]
  - Wrong technique in device usage process [Unknown]
  - Device physical property issue [Unknown]
  - Liquid product physical issue [Unknown]
